FAERS Safety Report 13064734 (Version 2)
Quarter: 2017Q1

REPORT INFORMATION
  Report Type: Spontaneous
  Country: LV (occurrence: LV)
  Receive Date: 20161227
  Receipt Date: 20170112
  Transmission Date: 20170428
  Serious: Yes (Other)
  Sender: FDA-Public Use
  Company Number: LV-PFIZER INC-2016576871

PATIENT
  Age: 78 Year
  Sex: Female

DRUGS (3)
  1. SUTENT [Suspect]
     Active Substance: SUNITINIB MALATE
     Indication: LUNG NEOPLASM MALIGNANT
     Dosage: 50 MG, CYCLIC
     Dates: start: 20161129
  2. BETAC [Concomitant]
     Indication: ARRHYTHMIA
     Dosage: UNK
  3. TWYNSTA [Concomitant]
     Active Substance: AMLODIPINE BESYLATE\TELMISARTAN
     Indication: ARRHYTHMIA
     Dosage: UNK

REACTIONS (4)
  - Diarrhoea [Recovered/Resolved]
  - Urinary retention [Recovered/Resolved]
  - Product use issue [Unknown]
  - Eye swelling [Recovered/Resolved]
